FAERS Safety Report 9495018 (Version 1)
Quarter: 2013Q3

REPORT INFORMATION
  Report Type: Spontaneous
  Country: US (occurrence: None)
  Receive Date: 20130830
  Receipt Date: 20130830
  Transmission Date: 20140515
  Serious: Yes (Other)
  Sender: FDA-Public Use
  Company Number: None

PATIENT
  Sex: Female
  Weight: 68.58 kg

DRUGS (3)
  1. LEVOTHYROXINE [Suspect]
  2. UNSPECIFIED INGREDIENT [Suspect]
  3. SYNTHROID [Suspect]

REACTIONS (6)
  - Hypothyroidism [None]
  - Arthralgia [None]
  - Dry skin [None]
  - Alopecia [None]
  - Condition aggravated [None]
  - Thyroid function test abnormal [None]
